FAERS Safety Report 4451522-9 (Version None)
Quarter: 2004Q3

REPORT INFORMATION
  Report Type: 
  Country: None (occurrence: None)
  Receive Date: 20040915
  Receipt Date: 20040903
  Transmission Date: 20050211
  Serious: Yes (Life-Threatening, Hospitalization, Other)
  Sender: FDA-Public Use
  Company Number: 2004223183US

PATIENT
  Age: 22 Year
  Sex: Male
  Weight: 53.6 kg

DRUGS (5)
  1. ZYVOX [Suspect]
     Indication: OSTEOMYELITIS
     Dosage: 400 MG,BID,ORAL
     Route: 048
     Dates: start: 20040706, end: 20040709
  2. CLONAZEPAM [Concomitant]
  3. LEVETIRACETAM [Concomitant]
  4. COLACE (DOCUSATE SODIUM) [Concomitant]
  5. VANCOMYCIN [Concomitant]

REACTIONS (4)
  - CONDITION AGGRAVATED [None]
  - CONVULSION [None]
  - GRAND MAL CONVULSION [None]
  - PYREXIA [None]
